FAERS Safety Report 7583261-X (Version None)
Quarter: 2011Q2

REPORT INFORMATION
  Report Type: 
  Country: None (occurrence: None)
  Receive Date: 20110627
  Receipt Date: 20110627
  Transmission Date: 20111010
  Serious: Yes (Hospitalization)
  Sender: FDA-Public Use
  Company Number: None

PATIENT
  Sex: Female
  Weight: 106 kg

DRUGS (3)
  1. CARBOPLATIN [Suspect]
     Dosage: 785 MG
     Dates: end: 20110607
  2. HERCEPTIN [Suspect]
     Dosage: 660 MG
     Dates: end: 20110614
  3. TAXOTERE [Suspect]
     Dosage: 160 MG
     Dates: end: 20110607

REACTIONS (5)
  - CHILLS [None]
  - BREAST DISORDER [None]
  - ERYTHEMA [None]
  - FEELING HOT [None]
  - BODY TEMPERATURE INCREASED [None]
